FAERS Safety Report 10030311 (Version 2)
Quarter: 2014Q2

REPORT INFORMATION
  Report Type: Spontaneous
  Country: US (occurrence: US)
  Receive Date: 20140323
  Receipt Date: 20140501
  Transmission Date: 20141212
  Serious: No
  Sender: FDA-Public Use
  Company Number: US-009507513-1403USA009333

PATIENT
  Age: 33 Year
  Sex: Female
  Weight: 131.97 kg

DRUGS (2)
  1. NEXPLANON [Suspect]
     Indication: CONTRACEPTION
     Dosage: 68 MG, 1 ROD
     Route: 059
     Dates: start: 20140311, end: 20140318
  2. NEXPLANON [Suspect]
     Dosage: 68 MG, 1 ROD
     Route: 059
     Dates: start: 20140318

REACTIONS (4)
  - Device breakage [Recovered/Resolved]
  - Implant site pain [Recovered/Resolved]
  - Device kink [Recovered/Resolved]
  - Product quality issue [Unknown]
